FAERS Safety Report 15249186 (Version 1)
Quarter: 2018Q3

REPORT INFORMATION
  Report Type: Spontaneous
  Country: US (occurrence: US)
  Receive Date: 20180716
  Receipt Date: 20180716
  Transmission Date: 20181010
  Serious: Yes (Other)
  Sender: FDA-Public Use
  Company Number: None

PATIENT
  Age: 58 Year
  Sex: Male
  Weight: 112.5 kg

DRUGS (1)
  1. PRIALT [Suspect]
     Active Substance: ZICONOTIDE ACETATE
     Indication: POST LAMINECTOMY SYNDROME
     Route: 008
     Dates: start: 20100815, end: 20171227

REACTIONS (6)
  - Divorced [None]
  - Gambling [None]
  - Hallucination, auditory [None]
  - Hallucination, visual [None]
  - Anger [None]
  - Mental status changes [None]

NARRATIVE: CASE EVENT DATE: 20170801
